FAERS Safety Report 8739865 (Version 2)
Quarter: 2012Q4

REPORT INFORMATION
  Report Type: Spontaneous
  Country: None (occurrence: None)
  Receive Date: 20120807
  Receipt Date: 20121009
  Transmission Date: 20130627
  Serious: Yes (Other)
  Sender: FDA-Public Use
  Company Number: AUR-APL-2012-03275

PATIENT
  Age: 20 Year
  Sex: Male

DRUGS (1)
  1. PAROXETINE HYDROCHLORIDE [Suspect]
     Indication: MAJOR DEPRESSION

REACTIONS (5)
  - Lower gastrointestinal haemorrhage [None]
  - Tremor [None]
  - Headache [None]
  - Activated partial thromboplastin time [None]
  - International normalised ratio increased [None]
